FAERS Safety Report 8687499 (Version 2)
Quarter: 2013Q4

REPORT INFORMATION
  Report Type: Spontaneous
  Country: US (occurrence: US)
  Receive Date: 20120727
  Receipt Date: 20131101
  Transmission Date: 20140711
  Serious: No
  Sender: FDA-Public Use
  Company Number: US-009507513-1207USA007215

PATIENT
  Sex: Male

DRUGS (1)
  1. CLARITIN-D-24 [Suspect]
     Indication: NASOPHARYNGITIS
     Dosage: UNK, UNKNOWN
     Route: 048
     Dates: start: 20120704

REACTIONS (1)
  - Insomnia [Unknown]
